FAERS Safety Report 8697979 (Version 2)
Quarter: 2013Q1

REPORT INFORMATION
  Report Type: Spontaneous
  Country: BR (occurrence: BR)
  Receive Date: 20120801
  Receipt Date: 20130109
  Transmission Date: 20140127
  Serious: Yes (Life-Threatening, Other)
  Sender: FDA-Public Use
  Company Number: PHHY2012BR066108

PATIENT
  Sex: Female

DRUGS (1)
  1. DIOVAN HCT [Suspect]
     Indication: BLOOD PRESSURE
     Dosage: 1 DF (160 MG VALS/12.5 MG HCTZ), DAILY
     Route: 048
     Dates: start: 201209

REACTIONS (17)
  - Feeling abnormal [Unknown]
  - Blood pressure increased [Recovered/Resolved]
  - Chest discomfort [Not Recovered/Not Resolved]
  - Malaise [Unknown]
  - Hyperhidrosis [Not Recovered/Not Resolved]
  - Nausea [Recovered/Resolved]
  - Dizziness [Not Recovered/Not Resolved]
  - Abdominal discomfort [Recovered/Resolved]
  - Diarrhoea [Unknown]
  - Dyspnoea [Recovered/Resolved]
  - Chest pain [Not Recovered/Not Resolved]
  - Headache [Unknown]
  - Constipation [Recovered/Resolved]
  - Local swelling [Unknown]
  - Pollakiuria [Unknown]
  - Sleep disorder [Unknown]
  - Drug ineffective [Unknown]
